FAERS Safety Report 6455264-X (Version None)
Quarter: 2009Q4

REPORT INFORMATION
  Report Type: 
  Country: None (occurrence: None)
  Receive Date: 20091119
  Receipt Date: 20091104
  Transmission Date: 20100525
  Serious: Yes (Life-Threatening)
  Sender: FDA-Public Use
  Company Number: 2009003398

PATIENT
  Age: 44 Year
  Sex: Male

DRUGS (2)
  1. ERLOTINIB HYDROCHLORIDE [Suspect]
     Indication: PANCREATIC CARCINOMA METASTATIC
     Dosage: (75 MG, QD), ORAL
     Route: 048
     Dates: start: 20091015, end: 20091019
  2. GEMZAR [Suspect]
     Indication: PANCREATIC CARCINOMA METASTATIC
     Dosage: (2000 MG), INTRAVENOUS
     Route: 042

REACTIONS (1)
  - NEUTROPENIA [None]
